FAERS Safety Report 9531225 (Version 1)
Quarter: 2013Q3

REPORT INFORMATION
  Report Type: Spontaneous
  Country: US (occurrence: None)
  Receive Date: 20130916
  Receipt Date: 20130916
  Transmission Date: 20140515
  Serious: Yes (Hospitalization)
  Sender: FDA-Public Use
  Company Number: None

PATIENT
  Age: 82 Year
  Sex: Female

DRUGS (4)
  1. CRESTOR [Suspect]
     Indication: BLOOD CHOLESTEROL INCREASED
     Dosage: 1 PILL; ONCE DAILY
     Route: 048
     Dates: start: 20070101, end: 20110101
  2. LISINIPRIL 5MG [Concomitant]
  3. METFORMIN [Concomitant]
  4. ONE-A-DAY VITAMIN/ MINERAL [Concomitant]

REACTIONS (2)
  - Muscle spasms [None]
  - Condition aggravated [None]
